FAERS Safety Report 6552506-7 (Version None)
Quarter: 2010Q1

REPORT INFORMATION
  Report Type: 
  Country: None (occurrence: None)
  Receive Date: 20100126
  Receipt Date: 20091219
  Transmission Date: 20100710
  Serious: Yes (Hospitalization, Other)
  Sender: FDA-Public Use
  Company Number: PHHY2009LB60533

PATIENT
  Age: 30 Year
  Sex: Female

DRUGS (2)
  1. CALCITONIN [Suspect]
  2. ANALGESICS [Concomitant]
     Route: 042

REACTIONS (11)
  - BONE FORMATION DECREASED [None]
  - CAESAREAN SECTION [None]
  - DRUG EXPOSURE DURING PREGNANCY [None]
  - GAIT DISTURBANCE [None]
  - HIP ARTHROPLASTY [None]
  - HIP FRACTURE [None]
  - JOINT RANGE OF MOTION DECREASED [None]
  - OSTEOARTHRITIS [None]
  - OSTEOPENIA [None]
  - PAIN [None]
  - UNEQUAL LIMB LENGTH [None]
